FAERS Safety Report 17258294 (Version 1)
Quarter: 2020Q1

REPORT INFORMATION
  Report Type: Spontaneous
  Country: US (occurrence: US)
  Receive Date: 20200110
  Receipt Date: 20200110
  Transmission Date: 20200409
  Serious: No
  Sender: FDA-Public Use
  Company Number: US-GLENMARK PHARMACEUTICALS-2019GMK043147

PATIENT

DRUGS (3)
  1. URSODIOL TABLETS 250 MG [Suspect]
     Active Substance: URSODIOL
     Indication: PRIMARY BILIARY CHOLANGITIS
     Dosage: 750 MG, QD
     Route: 048
     Dates: start: 201902
  2. SYNTHROID [Concomitant]
     Active Substance: LEVOTHYROXINE SODIUM
     Indication: THYROIDECTOMY
     Dosage: 0.125 UNK, QD
     Route: 065
  3. URSODIOL TABLETS 250 MG [Suspect]
     Active Substance: URSODIOL
     Dosage: 1000 MG, QD (DOSE INCREASED: 4 TABLETS A DAY; 2 TABLETS AT LUNCH AND 2 TABLETS AT AROUND NIGHT)
     Route: 048
     Dates: start: 201906, end: 2019

REACTIONS (3)
  - Poor quality product administered [Unknown]
  - Urinary tract infection [Not Recovered/Not Resolved]
  - Product physical issue [Unknown]

NARRATIVE: CASE EVENT DATE: 2019
